FAERS Safety Report 13231112 (Version 5)
Quarter: 2017Q4

REPORT INFORMATION
  Report Type: Report from Study
  Country: CA (occurrence: CA)
  Receive Date: 20170214
  Receipt Date: 20171004
  Transmission Date: 20180320
  Serious: Yes (Other)
  Sender: FDA-Public Use
  Company Number: CA-JNJFOC-20170211145

PATIENT
  Age: 34 Year
  Sex: Male
  Weight: 58.97 kg

DRUGS (2)
  1. STELARA [Suspect]
     Active Substance: USTEKINUMAB
     Indication: CROHN^S DISEASE
     Route: 058
     Dates: start: 20170111
  2. STELARA [Suspect]
     Active Substance: USTEKINUMAB
     Indication: CROHN^S DISEASE
     Route: 058
     Dates: start: 20140515

REACTIONS (4)
  - Off label use [Unknown]
  - Surgery [Recovered/Resolved]
  - Post procedural infection [Unknown]
  - Product use issue [Unknown]

NARRATIVE: CASE EVENT DATE: 20140515
